FAERS Safety Report 4851641-9 (Version None)
Quarter: 2005Q4

REPORT INFORMATION
  Report Type: 
  Country: None (occurrence: None)
  Receive Date: 20051212
  Receipt Date: 20051206
  Transmission Date: 20060501
  Serious: Yes (Life-Threatening, Hospitalization)
  Sender: FDA-Public Use
  Company Number: DE-MERCK-0512DEU00026

PATIENT
  Age: 67 Year
  Sex: Male
  Weight: 108 kg

DRUGS (1)
  1. VYTORIN [Suspect]
     Indication: HYPERLIPIDAEMIA
     Route: 048

REACTIONS (3)
  - FALL [None]
  - RENAL FAILURE ACUTE [None]
  - RHABDOMYOLYSIS [None]
